FAERS Safety Report 5946252-8 (Version None)
Quarter: 2008Q4

REPORT INFORMATION
  Report Type: 
  Country: None (occurrence: None)
  Receive Date: 20081110
  Receipt Date: 20081104
  Transmission Date: 20090506
  Serious: Yes (Congenital Anomaly)
  Sender: FDA-Public Use
  Company Number: GB-ROCHE-595260

PATIENT
  Sex: Female

DRUGS (5)
  1. ORLISTAT [Suspect]
     Indication: OBESITY
     Dosage: DRUG WITHDRAWN
     Dates: start: 20080201
  2. MIRTAZAPINE [Suspect]
     Indication: DEPRESSION
     Dosage: DRUG WITHDRAWN
     Dates: start: 20080201
  3. PROPRANOLOL [Suspect]
     Indication: ANXIETY
     Dosage: DRUG WITHDRAWN
     Dates: start: 20080201
  4. VITAMIN K TAB [Concomitant]
  5. URSODIOL [Concomitant]

REACTIONS (1)
  - TRANSPOSITION OF THE GREAT VESSELS [None]
